FAERS Safety Report 4426302-0 (Version None)
Quarter: 2004Q3

REPORT INFORMATION
  Report Type: 
  Country: None (occurrence: None)
  Receive Date: 20040811
  Receipt Date: 20040727
  Transmission Date: 20050211
  Serious: Yes (Hospitalization)
  Sender: FDA-Public Use
  Company Number: 04P-062-0268476-00

PATIENT
  Age: 22 Year
  Sex: Female
  Weight: 70 kg

DRUGS (3)
  1. AKINETON [Suspect]
     Indication: SUICIDE ATTEMPT
     Dosage: 2 MG, 3O IN 1 D, PER ORAL
     Route: 048
     Dates: start: 20040727, end: 20040727
  2. QUETIAPINE [Suspect]
     Indication: SUICIDE ATTEMPT
     Dosage: 300 MG, 100 IN 1 D, PER ORAL
     Route: 048
     Dates: start: 20040727, end: 20040727
  3. LORAZEPAM [Suspect]
     Indication: SUICIDE ATTEMPT
     Dosage: 1 MG, 50 IN 1 D, PER ORAL
     Route: 048
     Dates: start: 20040727, end: 20040727

REACTIONS (4)
  - BOWEL SOUNDS ABNORMAL [None]
  - FATIGUE [None]
  - SUICIDE ATTEMPT [None]
  - TACHYCARDIA [None]
